FAERS Safety Report 22874101 (Version 13)
Quarter: 2025Q3

REPORT INFORMATION
  Report Type: Report from Study
  Country: US (occurrence: US)
  Receive Date: 20230828
  Receipt Date: 20250821
  Transmission Date: 20251021
  Serious: Yes (Hospitalization, Other)
  Sender: TAKEDA
  Company Number: US-TAKEDA-2023TUS083123

PATIENT
  Age: 43 Year
  Sex: Female
  Weight: 114 kg

DRUGS (34)
  1. HUMAN IMMUNOGLOBULIN G [Suspect]
     Active Substance: HUMAN IMMUNOGLOBULIN G
     Indication: Immune system disorder
     Dosage: 12 GRAM, 1/WEEK
  2. HUMAN IMMUNOGLOBULIN G [Suspect]
     Active Substance: HUMAN IMMUNOGLOBULIN G
     Indication: Hypergammaglobulinaemia
  3. ACETAMINOPHEN [Concomitant]
     Active Substance: ACETAMINOPHEN
  4. FAMOTIDINE [Concomitant]
     Active Substance: FAMOTIDINE
  5. VENLAFAXINE HCL [Concomitant]
     Active Substance: VENLAFAXINE HYDROCHLORIDE
  6. NEXIUM [Concomitant]
     Active Substance: ESOMEPRAZOLE MAGNESIUM
  7. MOMETASONE FUROATE [Concomitant]
     Active Substance: MOMETASONE FUROATE
  8. GABAPENTIN [Concomitant]
     Active Substance: GABAPENTIN
  9. PIOGLITAZONE [Concomitant]
     Active Substance: PIOGLITAZONE
  10. DILTIAZEM HYDROCHLORIDE [Concomitant]
     Active Substance: DILTIAZEM HYDROCHLORIDE
  11. PROMETHAZINE HYDROCHLORIDE [Concomitant]
     Active Substance: PROMETHAZINE HYDROCHLORIDE
  12. THIAMINE HYDROCHLORIDE [Concomitant]
     Active Substance: THIAMINE HYDROCHLORIDE
  13. LIDOCAINE [Concomitant]
     Active Substance: LIDOCAINE
  14. CLOBETASOL [Concomitant]
     Active Substance: CLOBETASOL
  15. BENADRYL ALLERGY [Concomitant]
     Active Substance: DIPHENHYDRAMINE HYDROCHLORIDE
  16. SPIRONOLACTONE [Concomitant]
     Active Substance: SPIRONOLACTONE
  17. DIPHENHYDRAMINE HYDROCHLORIDE [Concomitant]
     Active Substance: DIPHENHYDRAMINE HYDROCHLORIDE
  18. PROPRANOLOL HYDROCHLORIDE [Concomitant]
     Active Substance: PROPRANOLOL HYDROCHLORIDE
  19. CETIRIZINE HCL [Concomitant]
     Active Substance: CETIRIZINE HYDROCHLORIDE
  20. BELBUCA [Concomitant]
     Active Substance: BUPRENORPHINE HYDROCHLORIDE
  21. LUNESTA [Concomitant]
     Active Substance: ESZOPICLONE
  22. ASPIRIN [Concomitant]
     Active Substance: ASPIRIN
  23. TIROSINT [Concomitant]
     Active Substance: LEVOTHYROXINE SODIUM
  24. PIOGLITAZONE [Concomitant]
     Active Substance: PIOGLITAZONE
  25. Semglee [Concomitant]
  26. BENADRYL [Concomitant]
     Active Substance: DIPHENHYDRAMINE HYDROCHLORIDE
  27. VENLAFAXINE [Concomitant]
     Active Substance: VENLAFAXINE HYDROCHLORIDE
  28. Clobetasol propion [Concomitant]
  29. DILTIAZEM [Concomitant]
     Active Substance: DILTIAZEM
  30. PROPRANOLOL [Concomitant]
     Active Substance: PROPRANOLOL HYDROCHLORIDE
  31. CETIRIZINE [Concomitant]
     Active Substance: CETIRIZINE HYDROCHLORIDE
  32. THIAMINE [Concomitant]
     Active Substance: THIAMINE
  33. PROMETHAZINE [Concomitant]
     Active Substance: PROMETHAZINE HYDROCHLORIDE
  34. MOMETASONE [Concomitant]
     Active Substance: MOMETASONE

REACTIONS (15)
  - Cerebrospinal fluid leakage [Unknown]
  - Urinary tract infection [Not Recovered/Not Resolved]
  - Abdominal distension [Unknown]
  - Wheezing [Unknown]
  - Vomiting [Unknown]
  - Nausea [Unknown]
  - Productive cough [Unknown]
  - Insurance issue [Unknown]
  - Product dose omission issue [Unknown]
  - Arthritis [Unknown]
  - Weight fluctuation [Unknown]
  - Infection [Unknown]
  - Fungal infection [Unknown]
  - Sinusitis [Recovering/Resolving]
  - Upper respiratory tract infection [Recovered/Resolved]

NARRATIVE: CASE EVENT DATE: 20240218
